FAERS Safety Report 23088683 (Version 1)
Quarter: 2023Q4

REPORT INFORMATION
  Report Type: Report from Study
  Country: PL (occurrence: PL)
  Receive Date: 20231020
  Receipt Date: 20231020
  Transmission Date: 20240110
  Serious: Yes (Hospitalization, Other)
  Sender: FDA-Public Use
  Company Number: PL-TAKEDA-2022TUS101785

PATIENT
  Age: 26 Year
  Sex: Female
  Weight: 75 kg

DRUGS (4)
  1. VEDOLIZUMAB [Suspect]
     Active Substance: VEDOLIZUMAB
     Indication: Crohn^s disease
     Dosage: UNK
     Route: 042
     Dates: start: 20211026
  2. MESALAMINE [Concomitant]
     Active Substance: MESALAMINE
     Indication: Prophylactic chemotherapy
     Dosage: 3000 MILLIGRAM, QD
     Route: 048
  3. METHYLPREDNISOLONE [Concomitant]
     Active Substance: METHYLPREDNISOLONE
     Indication: Crohn^s disease
     Dosage: 4 MILLIGRAM, QD
     Route: 048
  4. Calperos [Concomitant]
     Indication: Osteoporosis prophylaxis
     Dosage: 1000 MILLIGRAM, QD
     Route: 048

REACTIONS (5)
  - Rectal stenosis [Recovered/Resolved]
  - Anaemia [Recovered/Resolved]
  - Haemoglobin decreased [Recovered/Resolved]
  - Haematocrit decreased [Recovered/Resolved]
  - Mean cell volume decreased [Recovered/Resolved]

NARRATIVE: CASE EVENT DATE: 20211026
